FAERS Safety Report 4793369-X (Version None)
Quarter: 2005Q4

REPORT INFORMATION
  Report Type: 
  Country: None (occurrence: None)
  Receive Date: 20051005
  Receipt Date: 20050920
  Transmission Date: 20060501
  Serious: Yes (Other)
  Sender: FDA-Public Use
  Company Number: US_0509122264

PATIENT
  Sex: Male

DRUGS (1)
  1. FORTEO [Suspect]

REACTIONS (2)
  - CONVULSION [None]
  - TREMOR [None]
